FAERS Safety Report 5207200-1 (Version None)
Quarter: 2007Q1

REPORT INFORMATION
  Report Type: 
  Country: None (occurrence: None)
  Receive Date: 20070112
  Receipt Date: 20070102
  Transmission Date: 20070707
  Serious: Yes (Life-Threatening)
  Sender: FDA-Public Use
  Company Number: FR-GLAXOSMITHKLINE-B0452208A

PATIENT
  Age: 69 Year
  Sex: Female

DRUGS (6)
  1. ZOFRAN [Suspect]
     Indication: PROPHYLAXIS OF NAUSEA AND VOMITING
     Dosage: 8MG UNKNOWN
     Route: 065
     Dates: start: 20061031
  2. CAELYX [Suspect]
     Indication: OVARIAN CANCER
     Dosage: 30MGM2 SINGLE DOSE
     Route: 042
     Dates: start: 20061031, end: 20061031
  3. NEULASTA [Suspect]
     Indication: NEUTROPENIA
     Route: 058
     Dates: start: 20061101, end: 20061101
  4. EMEND [Suspect]
     Indication: PROPHYLAXIS OF NAUSEA AND VOMITING
     Dosage: 3TAB PER DAY
     Route: 048
     Dates: start: 20061031, end: 20061102
  5. CARBOPLATIN [Suspect]
     Indication: OVARIAN CANCER
     Dosage: 520MG SINGLE DOSE
     Route: 042
     Dates: start: 20061031, end: 20061031
  6. PRIMPERAN TAB [Concomitant]
     Indication: NAUSEA
     Route: 048
     Dates: start: 20061102

REACTIONS (2)
  - APHAGIA [None]
  - PHARYNGEAL OEDEMA [None]
